FAERS Safety Report 6305854-X (Version None)
Quarter: 2009Q3

REPORT INFORMATION
  Report Type: 
  Country: None (occurrence: None)
  Receive Date: 20090812
  Receipt Date: 20090807
  Transmission Date: 20100115
  Serious: Yes (Other)
  Sender: FDA-Public Use
  Company Number: US-BRISTOL-MYERS SQUIBB COMPANY-14734164

PATIENT
  Age: 59 Year
  Sex: Male

DRUGS (4)
  1. METFORMIN HCL [Suspect]
     Indication: TYPE 2 DIABETES MELLITUS
     Dosage: TAKEN AT NIGHT
     Dates: end: 20090101
  2. APIDRA [Suspect]
     Indication: TYPE 2 DIABETES MELLITUS
     Dosage: APIDRA SOLOSTAR SOLUTION FOR INJ AC 1 DF = 6UNITS,BEFORE MEAL REDUCED TO 4UNITS
     Route: 058
     Dates: start: 20090721
  3. LANTUS [Suspect]
     Indication: TYPE 2 DIABETES MELLITUS
     Dosage: 1 DF = 20 UNITS SOLUTION FOR INJ
     Route: 058
  4. ACTOS [Suspect]
     Indication: TYPE 2 DIABETES MELLITUS
     Dosage: TAKEN AT NIGHT
     Dates: end: 20090101

REACTIONS (2)
  - DIZZINESS [None]
  - HYPOGLYCAEMIA [None]
